FAERS Safety Report 8796444 (Version 2)
Quarter: 2012Q4

REPORT INFORMATION
  Report Type: 
  Country: IT (occurrence: IT)
  Receive Date: 20120920
  Receipt Date: 20121004
  Transmission Date: 20130627
  Serious: Yes (Other)
  Sender: FDA-Public Use
  Company Number: PHHY2012IT081290

PATIENT
  Age: 72 Year
  Sex: Male

DRUGS (10)
  1. EXELON PATCH [Suspect]
     Indication: DEMENTIA ALZHEIMER^S TYPE
     Dosage: 4.6 mg/24h
     Route: 062
     Dates: start: 20120630, end: 20120820
  2. THEO-DUR [Concomitant]
     Dosage: 300 mg, UNK
  3. TACHIDOL [Concomitant]
  4. FOLINA [Concomitant]
     Dosage: 5 mg, UNK
  5. PANTOPAN [Concomitant]
     Dosage: 40 mg, UNK
  6. LASIX [Concomitant]
     Dosage: 25 mg, UNK
  7. SPIRIVA [Concomitant]
     Dosage: 18 ug, UNK
  8. METOCAL [Concomitant]
     Dosage: 1250 mg, UNK
  9. CARDIOASPIRIN [Concomitant]
     Dosage: 100 mg, UNK
  10. OLANZAPINE [Concomitant]
     Dosage: 2 posologic units since 10 years

REACTIONS (2)
  - Foaming at mouth [Recovering/Resolving]
  - Aggression [Recovering/Resolving]
